FAERS Safety Report 9604163 (Version 1)
Quarter: 2013Q4

REPORT INFORMATION
  Report Type: Spontaneous
  Country: US (occurrence: US)
  Receive Date: 20131008
  Receipt Date: 20131008
  Transmission Date: 20140711
  Serious: No
  Sender: FDA-Public Use
  Company Number: US-JNJFOC-20131001804

PATIENT
  Age: 29 Year
  Sex: Male

DRUGS (3)
  1. INVEGA SUSTENNA [Suspect]
     Indication: SCHIZOPHRENIA
     Route: 030
     Dates: end: 2013
  2. INVEGA SUSTENNA [Suspect]
     Indication: SCHIZOPHRENIA
     Route: 030
     Dates: start: 201309
  3. ARTANE [Concomitant]
     Route: 065

REACTIONS (3)
  - Blood prolactin abnormal [Unknown]
  - Nervousness [Unknown]
  - Breast enlargement [Unknown]
